FAERS Safety Report 5603621-3 (Version None)
Quarter: 2008Q1

REPORT INFORMATION
  Report Type: 
  Country: None (occurrence: None)
  Receive Date: 20080122
  Receipt Date: 20080114
  Transmission Date: 20080703
  Serious: Yes (Hospitalization)
  Sender: FDA-Public Use
  Company Number: 2007BI024313

PATIENT
  Age: 41 Year
  Sex: Female
  Weight: 68.0396 kg

DRUGS (1)
  1. AVONEX [Suspect]
     Indication: MULTIPLE SCLEROSIS
     Dosage: 30 UG; QW; IM
     Route: 030
     Dates: start: 20070831

REACTIONS (6)
  - ANKLE FRACTURE [None]
  - BLISTER [None]
  - FALL [None]
  - FIBULA FRACTURE [None]
  - IMPAIRED HEALING [None]
  - TIBIA FRACTURE [None]
